FAERS Safety Report 8396087-4 (Version None)
Quarter: 2012Q2

REPORT INFORMATION
  Report Type: 
  Country: None (occurrence: None)
  Receive Date: 20120530
  Receipt Date: 20120523
  Transmission Date: 20120825
  Serious: Yes (Hospitalization)
  Sender: FDA-Public Use
  Company Number: JP-EISAI INC-E7389-02497-CLI-JP

PATIENT
  Sex: Male
  Weight: 57 kg

DRUGS (3)
  1. EPIRUBICIN HYDROCHLORIDE [Suspect]
     Route: 041
     Dates: start: 20120327
  2. EPIRUBICIN HYDROCHLORIDE [Suspect]
     Route: 041
     Dates: start: 20120306, end: 20120313
  3. MEDICON [Concomitant]
     Indication: COUGH
     Route: 048
     Dates: start: 20120310, end: 20120522

REACTIONS (1)
  - PNEUMOTHORAX [None]
